FAERS Safety Report 7619314-7 (Version None)
Quarter: 2011Q3

REPORT INFORMATION
  Report Type: 
  Country: None (occurrence: None)
  Receive Date: 20110718
  Receipt Date: 20110711
  Transmission Date: 20111222
  Serious: No
  Sender: FDA-Public Use
  Company Number: US-B.I. PHARMACEUTICALS,INC./RIDGEFIELD-2011-BP-17410BP

PATIENT
  Sex: Female

DRUGS (6)
  1. LOSARTIN HCTZ [Concomitant]
     Indication: HYPERTENSION
     Route: 048
  2. PRADAXA [Suspect]
     Indication: ATRIAL FIBRILLATION
     Dosage: 300 MG
     Route: 048
     Dates: start: 20110601
  3. METOPROLOL TARTRATE [Concomitant]
     Indication: ATRIAL FIBRILLATION
     Route: 048
  4. ALTACE [Concomitant]
     Indication: ATRIAL FIBRILLATION
     Route: 048
  5. METFORMIN HCL [Concomitant]
     Indication: DIABETES MELLITUS
     Route: 048
  6. CORTISONE SHOT [Concomitant]
     Indication: ARTHRALGIA

REACTIONS (3)
  - ARTHRALGIA [None]
  - NAUSEA [None]
  - CONTUSION [None]
